FAERS Safety Report 23534213 (Version 1)
Quarter: 2024Q1

REPORT INFORMATION
  Report Type: Spontaneous
  Country: CA (occurrence: CA)
  Receive Date: 20240216
  Receipt Date: 20240216
  Transmission Date: 20240410
  Serious: Yes (Death)
  Sender: FDA-Public Use
  Company Number: CA-HLS-202400273

PATIENT
  Sex: Male

DRUGS (5)
  1. CARVEDILOL [Concomitant]
     Active Substance: CARVEDILOL
     Dosage: TABLETS DOSAGE FORM
     Route: 065
  2. CLOZAPINE [Suspect]
     Active Substance: CLOZAPINE
     Indication: Product used for unknown indication
     Dosage: TABLETS DOSAGE FORM
     Route: 048
  3. RAMIPRIL [Concomitant]
     Active Substance: RAMIPRIL
     Dosage: NOT SPECIFIED DOSAGE FORM
     Route: 065
  4. ROSUVASTATIN [Concomitant]
     Active Substance: ROSUVASTATIN
     Dosage: NOT SPECIFIED DOSAGE FORM
     Route: 065
  5. DIVALPROEX SODIUM [Concomitant]
     Active Substance: DIVALPROEX SODIUM
     Route: 065

REACTIONS (2)
  - Overdose [Fatal]
  - Substance use disorder [Fatal]
